FAERS Safety Report 10678555 (Version 1)
Quarter: 2014Q4

REPORT INFORMATION
  Report Type: Spontaneous
  Country: DE (occurrence: DE)
  Receive Date: 20141229
  Receipt Date: 20141229
  Transmission Date: 20150529
  Serious: Yes (Hospitalization)
  Sender: FDA-Public Use
  Company Number: DE-PFIZER INC-2014353674

PATIENT
  Age: 84 Year
  Sex: Male

DRUGS (14)
  1. PANTOZOL [Concomitant]
     Active Substance: PANTOPRAZOLE SODIUM
  2. IBUPROFEN. [Interacting]
     Active Substance: IBUPROFEN
  3. ACTRAPID [Concomitant]
     Active Substance: INSULIN HUMAN
     Dosage: 24 IU, UNK
     Dates: start: 20120703, end: 20120731
  4. FUROSEMIDE. [Suspect]
     Active Substance: FUROSEMIDE
     Dosage: 40 MG, UNK
     Dates: start: 201206, end: 20120721
  5. RISPERDAL [Suspect]
     Active Substance: RISPERIDONE
     Dosage: 0.5 MG, UNK
     Dates: start: 20120803
  6. VALSARTAN. [Concomitant]
     Active Substance: VALSARTAN
  7. CLEXANE [Concomitant]
     Active Substance: ENOXAPARIN SODIUM
     Indication: BEDRIDDEN
     Dosage: 0.4 ML, UNK
     Dates: start: 20140723
  8. RISPERDAL [Suspect]
     Active Substance: RISPERIDONE
     Dosage: 1.5 MG, UNK
     Dates: start: 20120723, end: 20120801
  9. PLASTULEN [Concomitant]
     Dosage: 2 DF, DAILY
     Dates: start: 20120608, end: 20120731
  10. RISPERDAL [Suspect]
     Active Substance: RISPERIDONE
     Indication: DELIRIUM
     Dosage: 1 MG, DAILY
     Dates: start: 20120720, end: 20120722
  11. TORASEMIDE [Interacting]
     Active Substance: TORSEMIDE
     Dosage: 20 MG, UNK
     Dates: start: 20120722
  12. RISPERDAL [Suspect]
     Active Substance: RISPERIDONE
     Dosage: 1 MG, UNK
     Dates: start: 20120802, end: 20120802
  13. ASPIRIN. [Concomitant]
     Active Substance: ASPIRIN
  14. MELPERONE [Concomitant]
     Active Substance: MELPERONE

REACTIONS (2)
  - Drug interaction [Unknown]
  - Thrombocytopenia [Recovered/Resolved]

NARRATIVE: CASE EVENT DATE: 20120731
